FAERS Safety Report 4383029-1 (Version None)
Quarter: 2004Q2

REPORT INFORMATION
  Report Type: 
  Country: None (occurrence: None)
  Receive Date: 20040526
  Receipt Date: 20040420
  Transmission Date: 20050107
  Serious: Yes (Life-Threatening, Hospitalization)
  Sender: FDA-Public Use
  Company Number: US_0403101703

PATIENT
  Age: 58 Year
  Sex: Male
  Weight: 105 kg

DRUGS (5)
  1. OLANZAPINE [Suspect]
     Indication: BIPOLAR I DISORDER
     Dosage: 2.5 MG/1 DAY
     Dates: start: 20010427, end: 20040302
  2. REMERON [Concomitant]
  3. ACTOS (PIOGLITAZONE) [Concomitant]
  4. APRESOLINE [Concomitant]
  5. ZOCOR [Concomitant]

REACTIONS (4)
  - ORTHOSTATIC HYPOTENSION [None]
  - OVERDOSE [None]
  - SOMNOLENCE [None]
  - SUICIDE ATTEMPT [None]
